FAERS Safety Report 5495557-6 (Version None)
Quarter: 2007Q4

REPORT INFORMATION
  Report Type: 
  Country: None (occurrence: None)
  Receive Date: 20071025
  Receipt Date: 20071016
  Transmission Date: 20080405
  Serious: Yes (Hospitalization)
  Sender: FDA-Public Use
  Company Number: PHBS2007JP17432

PATIENT
  Age: 77 Year
  Sex: Male

DRUGS (2)
  1. VOLTAREN [Suspect]
     Indication: THORACIC VERTEBRAL FRACTURE
     Dosage: 50 MG, BID
     Route: 054
     Dates: start: 20070115, end: 20070101
  2. VOLTAREN [Suspect]
     Dosage: 50 MG, QD
     Route: 054
     Dates: start: 20070201, end: 20070401

REACTIONS (1)
  - EPISTAXIS [None]
